FAERS Safety Report 21332689 (Version 1)
Quarter: 2022Q3

REPORT INFORMATION
  Report Type: Spontaneous
  Country: US (occurrence: None)
  Receive Date: 20220913
  Receipt Date: 20220913
  Transmission Date: 20221026
  Serious: Yes (Disabling)
  Sender: FDA-Public Use
  Company Number: None

PATIENT
  Age: 65 Year
  Sex: Female
  Weight: 49.5 kg

DRUGS (12)
  1. NATURE-THROID [Suspect]
     Active Substance: THYROID, PORCINE
     Indication: Thyroid hormone replacement therapy
     Dosage: OTHER QUANTITY : 1 TABLET(S);?
     Route: 048
  2. SYNTHROID [Concomitant]
     Active Substance: LEVOTHYROXINE SODIUM
  3. LIOTHYRONINE [Concomitant]
     Active Substance: LIOTHYRONINE
  4. LUNESTA [Concomitant]
     Active Substance: ESZOPICLONE
  5. VITAMINS [Concomitant]
     Active Substance: VITAMINS
  6. VITAMIN C [Concomitant]
     Active Substance: ASCORBIC ACID
  7. D [Concomitant]
  8. MAGNESIUM [Concomitant]
     Active Substance: MAGNESIUM
  9. Algae Cal [Concomitant]
  10. Orthomega (Omega 3 oil) [Concomitant]
  11. QUERCETIN [Concomitant]
     Active Substance: QUERCETIN
  12. PROBIOTICS NOS [Concomitant]
     Active Substance: PROBIOTICS NOS

REACTIONS (4)
  - Hypothyroidism [None]
  - Hyperthyroidism [None]
  - Product availability issue [None]
  - Drug ineffective [None]

NARRATIVE: CASE EVENT DATE: 20181127
